FAERS Safety Report 8495966-7 (Version None)
Quarter: 2012Q3

REPORT INFORMATION
  Report Type: 
  Country: None (occurrence: None)
  Receive Date: 20120709
  Receipt Date: 20120330
  Transmission Date: 20120928
  Serious: Yes (Hospitalization)
  Sender: FDA-Public Use
  Company Number: DE-GLAXOSMITHKLINE-B0793635A

PATIENT
  Sex: Female
  Weight: 69 kg

DRUGS (5)
  1. DOCETAXEL [Suspect]
     Indication: BREAST CANCER
     Dosage: 75MGM2 EVERY 3 WEEKS
     Route: 042
     Dates: start: 20100517, end: 20100720
  2. METOPROLOL SUCCINATE [Concomitant]
     Indication: HYPERTENSION
     Dosage: 47.5MG TWICE PER DAY
     Route: 048
     Dates: start: 20120318
  3. LAPATINIB [Suspect]
     Indication: BREAST CANCER
     Route: 048
     Dates: start: 20100518, end: 20110518
  4. TRASTUZUMAB [Concomitant]
     Indication: BREAST CANCER
     Route: 042
     Dates: start: 20120106
  5. LETROZOLE [Concomitant]
     Indication: BREAST CANCER
     Dosage: 2.5MG FOUR TIMES PER DAY
     Route: 048
     Dates: start: 20100921

REACTIONS (1)
  - HYPERTENSION [None]
